FAERS Safety Report 9746554 (Version 1)
Quarter: 2013Q4

REPORT INFORMATION
  Report Type: Spontaneous
  Country: ES (occurrence: ES)
  Receive Date: 20131211
  Receipt Date: 20131211
  Transmission Date: 20140711
  Serious: Yes (Other)
  Sender: FDA-Public Use
  Company Number: ES-ACTAVIS-2013-22732

PATIENT
  Age: 47 Year
  Sex: Female

DRUGS (1)
  1. GEMCITABIN ACTAVIS [Suspect]
     Indication: SARCOMA
     Dosage: 3675 MG EVERY TWO WEEKS, 2500 MG/M2
     Route: 042
     Dates: start: 20131010, end: 20131010

REACTIONS (4)
  - Alcohol poisoning [Recovered/Resolved]
  - Dizziness [Recovered/Resolved]
  - Nausea [Recovered/Resolved]
  - Speech disorder [Recovered/Resolved]
